FAERS Safety Report 6690940-5 (Version None)
Quarter: 2010Q2

REPORT INFORMATION
  Report Type: 
  Country: None (occurrence: None)
  Receive Date: 20100421
  Receipt Date: 20100413
  Transmission Date: 20101027
  Serious: Yes (Other)
  Sender: FDA-Public Use
  Company Number: US-AMGEN-QUU401987

PATIENT
  Sex: Male
  Weight: 124.4 kg

DRUGS (5)
  1. NPLATE [Suspect]
     Indication: IDIOPATHIC THROMBOCYTOPENIC PURPURA
     Route: 058
     Dates: start: 20080918, end: 20100415
  2. GLUCOPHAGE [Concomitant]
  3. VITAMIN C [Concomitant]
  4. LASIX [Concomitant]
  5. FELODIPINE [Concomitant]

REACTIONS (1)
  - BONE MARROW RETICULIN FIBROSIS [None]
